FAERS Safety Report 13210586 (Version 1)
Quarter: 2017Q1

REPORT INFORMATION
  Report Type: Spontaneous
  Country: FR (occurrence: FR)
  Receive Date: 20170210
  Receipt Date: 20170210
  Transmission Date: 20170428
  Serious: Yes (Other)
  Sender: FDA-Public Use
  Company Number: FR-GUERBET LLC-1062958

PATIENT
  Age: 28 Year
  Sex: Female

DRUGS (1)
  1. OPTIRAY PBP [Suspect]
     Active Substance: IOVERSOL
     Indication: SCAN
     Route: 042
     Dates: start: 20170128, end: 20170128

REACTIONS (4)
  - Malaise [Recovered/Resolved]
  - Loss of consciousness [Recovered/Resolved]
  - Type I hypersensitivity [Recovered/Resolved]
  - Hypothermia [Recovered/Resolved]

NARRATIVE: CASE EVENT DATE: 20170128
